FAERS Safety Report 9559753 (Version 2)
Quarter: 2014Q1

REPORT INFORMATION
  Report Type: Spontaneous
  Country: JP (occurrence: JP)
  Receive Date: 20130927
  Receipt Date: 20140129
  Transmission Date: 20141002
  Serious: Yes (Hospitalization, Other)
  Sender: FDA-Public Use
  Company Number: JP-ASTRAZENECA-2013SE71242

PATIENT
  Age: 68 Year
  Sex: Male

DRUGS (5)
  1. OMEPRAL [Suspect]
     Indication: HELICOBACTER INFECTION
     Route: 048
     Dates: start: 20130809, end: 20130814
  2. SAWACILLIN [Suspect]
     Indication: HELICOBACTER INFECTION
     Route: 048
     Dates: start: 20130809, end: 20130814
  3. CLARITH [Suspect]
     Indication: HELICOBACTER INFECTION
     Route: 048
     Dates: start: 20130809, end: 20130814
  4. URINORM [Suspect]
     Indication: BLOOD URIC ACID INCREASED
     Route: 048
  5. URALYT-U [Suspect]
     Indication: PH URINE DECREASED
     Route: 048

REACTIONS (8)
  - Shock [Unknown]
  - Dry eye [Unknown]
  - Flushing [Not Recovered/Not Resolved]
  - Enanthema [Unknown]
  - Drug eruption [Recovering/Resolving]
  - Eyelid oedema [Recovering/Resolving]
  - Face oedema [Recovering/Resolving]
  - Pyrexia [Unknown]
